FAERS Safety Report 4824635-7 (Version None)
Quarter: 2005Q4

REPORT INFORMATION
  Report Type: 
  Country: None (occurrence: None)
  Receive Date: 20051108
  Receipt Date: 20051027
  Transmission Date: 20060501
  Serious: Yes (Hospitalization, Other)
  Sender: FDA-Public Use
  Company Number: 2005137125

PATIENT
  Age: 11 Year
  Sex: Female
  Weight: 38 kg

DRUGS (2)
  1. GENOTROPIN [Suspect]
     Indication: GROWTH HORMONE DEFICIENCY
     Dosage: 1.3 MG (DAILY), SUBCUTANEOUS
     Route: 058
     Dates: start: 19990626
  2. LEVOTHYROXINE SODIUM [Concomitant]

REACTIONS (2)
  - RENAL CELL CARCINOMA STAGE UNSPECIFIED [None]
  - URINARY TRACT INFECTION [None]
